FAERS Safety Report 7677758-1 (Version None)
Quarter: 2011Q3

REPORT INFORMATION
  Report Type: 
  Country: None (occurrence: None)
  Receive Date: 20110811
  Receipt Date: 20110802
  Transmission Date: 20111222
  Serious: Yes (Other)
  Sender: FDA-Public Use
  Company Number: IT-ASTRAZENECA-2011SE41895

PATIENT
  Sex: Male

DRUGS (6)
  1. BETADINE [Suspect]
     Indication: INFECTION PROPHYLAXIS
     Dosage: 10% SOLUTION SKIN FLACON 1 L
     Route: 061
     Dates: start: 20110516, end: 20110518
  2. HYALURONIDASE [Suspect]
     Indication: LOCAL ANAESTHESIA
     Route: 058
     Dates: start: 20110518, end: 20110518
  3. IOPIDINE [Suspect]
     Indication: INTRAOCULAR PRESSURE INCREASED
     Dosage: OPHTHALMIC SOLUTION 0.5% 5 ML
     Route: 047
  4. COSOPT [Suspect]
     Indication: INTRAOCULAR PRESSURE INCREASED
     Dosage: EYE DROPS 2% DORZOLAMIDE HYDROCHLORIDE + 0.5% TIMOLOL MALEATE SOLUTION 3 FLACON  5 ML
     Route: 047
     Dates: start: 20110516, end: 20110518
  5. NAROPIN [Suspect]
     Indication: LOCAL ANAESTHESIA
     Dosage: 5 MG / ML SOLUTION FOR INJECTION, 5 VIALS POLYAMP OF 10 ML
     Route: 058
     Dates: start: 20110518, end: 20110518
  6. CIPROFLOXACIN HCL [Suspect]
     Indication: EYE INFECTION
     Dosage: 0.3% EYE DROPS, SOLUTION 5 ML FLACON
     Route: 047
     Dates: start: 20110516, end: 20110518

REACTIONS (1)
  - ANGIOEDEMA [None]
